FAERS Safety Report 20918746 (Version 1)
Quarter: 2022Q2

REPORT INFORMATION
  Report Type: Spontaneous
  Country: US (occurrence: US)
  Receive Date: 20220606
  Receipt Date: 20220606
  Transmission Date: 20220721
  Serious: Yes (Hospitalization, Other)
  Sender: FDA-Public Use
  Company Number: US-MACLEODS PHARMACEUTICALS US LTD-MAC2022035886

PATIENT

DRUGS (3)
  1. OLANZAPINE [Interacting]
     Active Substance: OLANZAPINE
     Indication: Aggression
     Dosage: 10 MILLIGRAM, SINGLE (TOTAL)
     Route: 065
  2. DROPERIDOL [Interacting]
     Active Substance: DROPERIDOL
     Indication: Aggression
     Dosage: 5 MILLIGRAM, SINGLE ( TOTAL)
     Route: 065
  3. DROPERIDOL [Interacting]
     Active Substance: DROPERIDOL
     Dosage: 1.25 MILLIGRAM, SINGLE (TOTAL)
     Route: 065

REACTIONS (3)
  - Extrapyramidal disorder [Recovering/Resolving]
  - Ataxia [Recovering/Resolving]
  - Drug interaction [Recovering/Resolving]
